FAERS Safety Report 12721086 (Version 3)
Quarter: 2016Q4

REPORT INFORMATION
  Report Type: Spontaneous
  Country: US (occurrence: US)
  Receive Date: 20160907
  Receipt Date: 20161129
  Transmission Date: 20170207
  Serious: Yes (Other)
  Sender: FDA-Public Use
  Company Number: US-PFIZER INC-2016416519

PATIENT
  Age: 29 Year
  Sex: Female

DRUGS (13)
  1. EFFEXOR XR [Suspect]
     Active Substance: VENLAFAXINE HYDROCHLORIDE
     Indication: IRRITABILITY
     Dosage: 37.5 MG, 1X/DAY
     Dates: start: 20001031
  2. WELLBUTRIN [Concomitant]
     Active Substance: BUPROPION HYDROCHLORIDE
     Dosage: 150 MG, UNK
     Dates: start: 20151226
  3. PHYTISONE [Concomitant]
     Indication: ADRENAL DISORDER
     Dosage: UNK
     Dates: start: 20151204
  4. GABA [Concomitant]
     Active Substance: .GAMMA.-AMINOBUTYRIC ACID
     Dosage: 600 MG, UNK
     Dates: start: 20160607
  5. EFFEXOR XR [Suspect]
     Active Substance: VENLAFAXINE HYDROCHLORIDE
     Dosage: 75 MG, 2X/DAY
     Dates: start: 20011227
  6. EFFEXOR XR [Suspect]
     Active Substance: VENLAFAXINE HYDROCHLORIDE
     Dosage: 75 MG, 3X/DAY
     Dates: start: 20020122, end: 20031029
  7. OMEGA 3 FISH OIL [Concomitant]
     Active Substance: FISH OIL\OMEGA-3 FATTY ACIDS
     Dosage: UNK (2-3000 MG)
     Dates: start: 20151027
  8. VITAMIN B [Concomitant]
     Active Substance: VITAMIN B
     Dosage: 50 MG, UNK
     Dates: start: 20160124
  9. VITAMIN D [Concomitant]
     Active Substance: CHOLECALCIFEROL
     Dosage: UNK (3-5000 MG)
     Dates: start: 20160124
  10. EFFEXOR XR [Suspect]
     Active Substance: VENLAFAXINE HYDROCHLORIDE
     Indication: DEPRESSION
     Dosage: 75 MG, 1X/DAY
     Dates: start: 20010412
  11. 5-HTP [Concomitant]
     Active Substance: OXITRIPTAN
     Dosage: UNK (2-3000 MG)
     Dates: start: 20151204
  12. EFFEXOR XR [Suspect]
     Active Substance: VENLAFAXINE HYDROCHLORIDE
     Dosage: 75 MG, 1X/DAY
     Dates: start: 20060124, end: 20060705
  13. LEXAPRO [Concomitant]
     Active Substance: ESCITALOPRAM OXALATE
     Indication: DEPRESSION
     Dosage: UNK (10-40 MG)

REACTIONS (20)
  - Feeling abnormal [Not Recovered/Not Resolved]
  - Product use issue [Unknown]
  - Dizziness [Not Recovered/Not Resolved]
  - Anorgasmia [Recovered/Resolved]
  - Vision blurred [Not Recovered/Not Resolved]
  - Apathy [Not Recovered/Not Resolved]
  - Nausea [Not Recovered/Not Resolved]
  - Libido decreased [Recovered/Resolved]
  - Sleep disorder [Recovered/Resolved]
  - Asthenia [Not Recovered/Not Resolved]
  - Crying [Not Recovered/Not Resolved]
  - Chills [Recovered/Resolved]
  - Suicidal ideation [Not Recovered/Not Resolved]
  - Night sweats [Recovered/Resolved]
  - Anxiety [Not Recovered/Not Resolved]
  - Tremor [Not Recovered/Not Resolved]
  - Activities of daily living impaired [Not Recovered/Not Resolved]
  - Drug ineffective [Not Recovered/Not Resolved]
  - Blood cortisol decreased [Unknown]
  - Confusional state [Not Recovered/Not Resolved]

NARRATIVE: CASE EVENT DATE: 201510
